FAERS Safety Report 7226416-6 (Version None)
Quarter: 2011Q1

REPORT INFORMATION
  Report Type: 
  Country: None (occurrence: None)
  Receive Date: 20110110
  Receipt Date: 20110110
  Transmission Date: 20110831
  Serious: Yes (Other)
  Sender: FDA-Public Use
  Company Number: None

PATIENT
  Age: 38 Year
  Sex: Male
  Weight: 77.1115 kg

DRUGS (1)
  1. ZOLPIDEM ER 12.5MG WINTHROP U.S. [Suspect]
     Indication: INSOMNIA
     Dosage: ONE BEDTIME AS NEEDED PRN PO
     Route: 048
     Dates: start: 20110106, end: 20110107

REACTIONS (3)
  - DRUG INEFFECTIVE [None]
  - PRODUCT COUNTERFEIT [None]
  - INITIAL INSOMNIA [None]
